FAERS Safety Report 14239694 (Version 1)
Quarter: 2017Q4

REPORT INFORMATION
  Report Type: Spontaneous
  Country: US (occurrence: None)
  Receive Date: 20171127
  Receipt Date: 20171127
  Transmission Date: 20180321
  Serious: Yes (Hospitalization)
  Sender: FDA-Public Use
  Company Number: None

PATIENT
  Sex: Male
  Weight: 113.4 kg

DRUGS (2)
  1. BUPRENORPHINE HYDROCHLORIDE AND NALOXONE HYDROCHLORIDE [Suspect]
     Active Substance: BUPRENORPHINE HYDROCHLORIDE\NALOXONE HYDROCHLORIDE
     Indication: DRUG USE DISORDER
     Dosage: 2MG CLINIC INDUCTIOIN SUBLINGUAL
     Route: 060
     Dates: start: 20171003, end: 20171003
  2. BUPRENORPHINE HYDROCHLORIDE AND NALOXONE HYDROCHLORIDE [Suspect]
     Active Substance: BUPRENORPHINE HYDROCHLORIDE\NALOXONE HYDROCHLORIDE
     Indication: PAIN
     Dosage: 2MG CLINIC INDUCTIOIN SUBLINGUAL
     Route: 060
     Dates: start: 20171003, end: 20171003

REACTIONS (8)
  - Altered state of consciousness [None]
  - Hyperhidrosis [None]
  - Fatigue [None]
  - Malaise [None]
  - Drug ineffective [None]
  - Therapeutic response unexpected [None]
  - Nausea [None]
  - Somnolence [None]
